FAERS Safety Report 19471906 (Version 1)
Quarter: 2021Q2

REPORT INFORMATION
  Report Type: Spontaneous
  Country: US (occurrence: US)
  Receive Date: 20210629
  Receipt Date: 20210629
  Transmission Date: 20210717
  Serious: Yes (Hospitalization)
  Sender: FDA-Public Use
  Company Number: None

PATIENT
  Age: 70 Year
  Sex: Female
  Weight: 99.8 kg

DRUGS (1)
  1. DECITABINE [5?AZA?2^? DEOXYCYTIDINE] 200MG [Suspect]
     Active Substance: DECITABINE
     Dates: end: 20210614

REACTIONS (4)
  - Thrombocytopenia [None]
  - Neutropenia [None]
  - Diverticulitis [None]
  - Abdominal pain [None]

NARRATIVE: CASE EVENT DATE: 20210619
